FAERS Safety Report 5223366-1 (Version None)
Quarter: 2007Q1

REPORT INFORMATION
  Report Type: 
  Country: None (occurrence: None)
  Receive Date: 20061201
  Receipt Date: 20060702
  Transmission Date: 20070707
  Serious: No
  Sender: FDA-Public Use
  Company Number: 2006PV016789

PATIENT
  Age: 69 Year
  Sex: Female
  Weight: 113.3993 kg

DRUGS (4)
  1. BYETTA [Suspect]
     Indication: DIABETES MELLITUS NON-INSULIN-DEPENDENT
     Dosage: 10 MCG BID SC
     Route: 058
     Dates: start: 20060702
  2. AVANDIA [Concomitant]
  3. GLUCOTROL XL [Concomitant]
  4. ACTOS [Concomitant]

REACTIONS (3)
  - CHILLS [None]
  - FEELING HOT [None]
  - HYPERHIDROSIS [None]
